FAERS Safety Report 5149007-X (Version None)
Quarter: 2006Q4

REPORT INFORMATION
  Report Type: 
  Country: None (occurrence: None)
  Receive Date: 20061108
  Receipt Date: 20061024
  Transmission Date: 20070319
  Serious: Yes (Death)
  Sender: FDA-Public Use
  Company Number: 2006S1009990

PATIENT
  Age: 50 Year
  Sex: Male

DRUGS (5)
  1. CLOZAPINE [Suspect]
     Dosage: 25 MG;QOD; PO; 12.5 MG; QOD;PO
     Route: 048
     Dates: start: 20060201, end: 20060901
  2. CLOZAPINE [Suspect]
     Dosage: 25 MG;QOD; PO; 12.5 MG; QOD;PO
     Route: 048
     Dates: start: 20060201, end: 20060901
  3. CLONAZEPAM [Concomitant]
  4. LEVOTHYROXINE SODIUM [Concomitant]
  5. FLUVOXAMINE MALEATE [Concomitant]

REACTIONS (1)
  - DEATH [None]
